FAERS Safety Report 14411375 (Version 1)
Quarter: 2018Q1

REPORT INFORMATION
  Report Type: Spontaneous
  Country: US (occurrence: US)
  Receive Date: 20180119
  Receipt Date: 20180119
  Transmission Date: 20180509
  Serious: No
  Sender: FDA-Public Use
  Company Number: US-BAYER-2018-009436

PATIENT
  Age: 87 Year
  Sex: Male

DRUGS (1)
  1. MOXIFLOXACIN IV [Suspect]
     Active Substance: MOXIFLOXACIN
     Indication: OSTEOMYELITIS
     Dosage: UNK

REACTIONS (2)
  - Off label use [None]
  - Product use in unapproved indication [None]
